FAERS Safety Report 12619816 (Version 2)
Quarter: 2016Q3

REPORT INFORMATION
  Report Type: Spontaneous
  Country: US (occurrence: JP)
  Receive Date: 20160803
  Receipt Date: 20160901
  Transmission Date: 20161109
  Serious: Yes (Hospitalization)
  Sender: FDA-Public Use
  Company Number: JP-FRI-1000086617

PATIENT
  Age: 32 Year
  Sex: Female

DRUGS (13)
  1. RAMELTEON [Concomitant]
     Active Substance: RAMELTEON
     Dates: start: 20160606
  2. ASENAPINE [Suspect]
     Active Substance: ASENAPINE
     Indication: SCHIZOPHRENIA
     Dosage: 10 MG
     Route: 060
     Dates: start: 20160606, end: 20160607
  3. ESZOPICLONE. [Concomitant]
     Active Substance: ESZOPICLONE
     Dates: start: 20160608
  4. TASMOLIN [Concomitant]
     Active Substance: BIPERIDEN
     Dates: start: 20160612, end: 20160612
  5. DIAZEPAM. [Concomitant]
     Active Substance: DIAZEPAM
     Dates: start: 20160612, end: 20160612
  6. RISPERIDONE. [Concomitant]
     Active Substance: RISPERIDONE
     Dates: start: 20160606, end: 20160607
  7. BIPERIDEN HYDROCHLORIDE [Concomitant]
     Active Substance: BIPERIDEN HYDROCHLORIDE
     Dates: start: 20160613, end: 20160629
  8. LITHIUM CARBONATE. [Concomitant]
     Active Substance: LITHIUM CARBONATE
     Dates: start: 20160606
  9. ASENAPINE [Suspect]
     Active Substance: ASENAPINE
     Dosage: 20 MG
     Route: 060
     Dates: start: 20160613, end: 20160713
  10. ASENAPINE [Suspect]
     Active Substance: ASENAPINE
     Dosage: 10 MG, DAILY
     Route: 060
     Dates: start: 20160714
  11. FLUNITRAZEPAM [Concomitant]
     Active Substance: FLUNITRAZEPAM
     Dates: start: 20160606, end: 20160607
  12. ASENAPINE [Suspect]
     Active Substance: ASENAPINE
     Dosage: 20 MG (10 MG, BID, 5-10MG PRN)
     Route: 060
     Dates: start: 20160608, end: 20160612
  13. TANDOSPIRONE CITRATE [Concomitant]
     Active Substance: TANDOSPIRONE CITRATE
     Dates: start: 20160613

REACTIONS (6)
  - Akathisia [Recovering/Resolving]
  - Hallucination, auditory [Recovering/Resolving]
  - Hypoaesthesia oral [Recovering/Resolving]
  - Anxiety [Recovering/Resolving]
  - Pyrexia [Recovering/Resolving]
  - Insomnia [Recovering/Resolving]

NARRATIVE: CASE EVENT DATE: 20160606
